FAERS Safety Report 13068250 (Version 1)
Quarter: 2016Q4

REPORT INFORMATION
  Report Type: Report from Study
  Country: US (occurrence: US)
  Receive Date: 20161228
  Receipt Date: 20161228
  Transmission Date: 20170207
  Serious: Yes (Other)
  Sender: FDA-Public Use
  Company Number: US-JNJFOC-20151007079

PATIENT
  Sex: Male

DRUGS (1)
  1. IMBRUVICA [Suspect]
     Active Substance: IBRUTINIB
     Indication: WALDENSTROM^S MACROGLOBULINAEMIA
     Route: 048
     Dates: start: 20150717

REACTIONS (4)
  - Neuropathy peripheral [Not Recovered/Not Resolved]
  - Dysplasia [Not Recovered/Not Resolved]
  - Skin abrasion [Unknown]
  - Fatigue [Unknown]

NARRATIVE: CASE EVENT DATE: 2015
